FAERS Safety Report 8819737 (Version 2)
Quarter: 2012Q4

REPORT INFORMATION
  Report Type: 
  Country: US (occurrence: US)
  Receive Date: 20121001
  Receipt Date: 20121018
  Transmission Date: 20130627
  Serious: Yes (Hospitalization, Other)
  Sender: FDA-Public Use
  Company Number: US-ASTRAZENECA-2012SE72403

PATIENT
  Age: 73 Year
  Sex: Female
  Weight: 106.1 kg

DRUGS (1)
  1. NEXIUM [Suspect]
     Indication: GASTROOESOPHAGEAL REFLUX DISEASE
     Route: 048

REACTIONS (5)
  - Heart rate irregular [Unknown]
  - Device malfunction [Unknown]
  - Gout [Unknown]
  - Gout [Unknown]
  - Diabetes mellitus [Unknown]
